FAERS Safety Report 13935024 (Version 1)
Quarter: 2017Q3

REPORT INFORMATION
  Report Type: Spontaneous
  Country: JP (occurrence: JP)
  Receive Date: 20170905
  Receipt Date: 20170905
  Transmission Date: 20171127
  Serious: Yes (Other)
  Sender: FDA-Public Use
  Company Number: JP-ACCORD-058073

PATIENT
  Age: 82 Year
  Sex: Male

DRUGS (5)
  1. ITRACONAZOLE. [Suspect]
     Active Substance: ITRACONAZOLE
     Indication: KERATITIS FUNGAL
     Route: 048
  2. PIMARICIN [Suspect]
     Active Substance: NATAMYCIN
     Indication: KERATITIS FUNGAL
  3. VORICONAZOLE. [Concomitant]
     Active Substance: VORICONAZOLE
     Indication: KERATITIS FUNGAL
     Route: 061
  4. VORICONAZOLE. [Concomitant]
     Active Substance: VORICONAZOLE
     Indication: KERATITIS FUNGAL
     Route: 042
  5. AMPHOTERICIN B/AMPHOTERICIN B/LIPOSOME [Suspect]
     Active Substance: AMPHOTERICIN B
     Indication: KERATITIS FUNGAL
     Route: 061

REACTIONS (1)
  - Corneal disorder [Unknown]
